FAERS Safety Report 20595831 (Version 1)
Quarter: 2022Q1

REPORT INFORMATION
  Report Type: Spontaneous
  Country: US (occurrence: None)
  Receive Date: 20220315
  Receipt Date: 20220315
  Transmission Date: 20220423
  Serious: Yes (Hospitalization, Other)
  Sender: FDA-Public Use
  Company Number: None

PATIENT
  Age: 73 Year
  Sex: Female
  Weight: 75.5 kg

DRUGS (1)
  1. TAXOL [Suspect]
     Active Substance: PACLITAXEL
     Indication: Metastatic neoplasm
     Dates: start: 20220128, end: 20220310

REACTIONS (2)
  - Colitis [None]
  - Cholelithiasis [None]

NARRATIVE: CASE EVENT DATE: 20220314
